FAERS Safety Report 8490135-9 (Version None)
Quarter: 2012Q3

REPORT INFORMATION
  Report Type: 
  Country: None (occurrence: None)
  Receive Date: 20120705
  Receipt Date: 20120625
  Transmission Date: 20120928
  Serious: Yes (Hospitalization)
  Sender: FDA-Public Use
  Company Number: US-SANOFI-AVENTIS-2012SA041418

PATIENT
  Age: 76 Year
  Sex: Female
  Weight: 63.5 kg

DRUGS (20)
  1. GABAPENTIN [Concomitant]
  2. MAGNESIUM CHLORIDE [Concomitant]
  3. IRON [Concomitant]
  4. SOLOSTAR [Suspect]
     Dates: start: 20120112
  5. AMITRIPTYLINE HCL [Concomitant]
     Indication: PAIN
  6. CALCIUM WITH VITAMIN D [Concomitant]
  7. SPIRIVA [Concomitant]
  8. DIGOXIN [Concomitant]
     Indication: ATRIAL FIBRILLATION
     Dosage: DOSAGE: 125 MG, FOUR TIMES PER WEEK
  9. DILTIAZEM HCL [Concomitant]
     Indication: BLOOD PRESSURE
  10. LIPITOR [Concomitant]
  11. ADVAIR DISKUS 100/50 [Concomitant]
  12. METOPROLOL SUCCINATE [Concomitant]
     Indication: BLOOD PRESSURE
  13. MULTI-VITAMINS [Concomitant]
  14. LANTUS [Suspect]
     Dosage: DOSE:6 UNIT(S)
     Route: 058
     Dates: start: 20120112
  15. HYDRALAZINE HYDROCHLORIDE [Concomitant]
     Indication: BLOOD PRESSURE
  16. SYNTHROID [Concomitant]
     Indication: THYROID DISORDER
  17. ASCORBIC ACID [Concomitant]
  18. GLIMEPIRIDE [Concomitant]
  19. KLOR-CON [Concomitant]
  20. WARFARIN SODIUM [Concomitant]

REACTIONS (1)
  - INTESTINAL OBSTRUCTION [None]
